FAERS Safety Report 6733999-9 (Version None)
Quarter: 2010Q2

REPORT INFORMATION
  Report Type: 
  Country: None (occurrence: None)
  Receive Date: 20100518
  Receipt Date: 20100506
  Transmission Date: 20101027
  Serious: Yes (Hospitalization)
  Sender: FDA-Public Use
  Company Number: 7001859

PATIENT
  Age: 50 Year
  Sex: Female

DRUGS (6)
  1. REBIF [Suspect]
     Indication: MULTIPLE SCLEROSIS
     Dosage: 44 MCG, 3 IIN 1 WK, SUBCUTANEOUS
     Route: 058
     Dates: start: 20100205, end: 20100430
  2. LEXAPRO [Concomitant]
  3. GABAPENTIN [Concomitant]
  4. OXYBUTYNIN CHLORIDE [Concomitant]
  5. OXYCONTIN [Concomitant]
  6. MARIJUANA (CANNABIS SATIVA) [Concomitant]

REACTIONS (3)
  - CRYING [None]
  - INFLUENZA LIKE ILLNESS [None]
  - PAIN [None]
